FAERS Safety Report 16859418 (Version 1)
Quarter: 2019Q3

REPORT INFORMATION
  Report Type: Other
  Country: GB (occurrence: GB)
  Receive Date: 20190927
  Receipt Date: 20190927
  Transmission Date: 20191005
  Serious: Yes (Other)
  Sender: FDA-Public Use
  Company Number: GB-LUPIN PHARMACEUTICALS INC.-2018-03551

PATIENT
  Age: 43 Year
  Sex: Male

DRUGS (10)
  1. METHYLPREDNISOLONE. [Suspect]
     Active Substance: METHYLPREDNISOLONE
     Indication: PRODUCT USED FOR UNKNOWN INDICATION
     Dosage: 500 MILLIGRAM, 500 MG IN 100 ML NACL 0.9 %
     Route: 042
  2. LEMTRADA [Suspect]
     Active Substance: ALEMTUZUMAB
     Indication: MULTIPLE SCLEROSIS
     Dosage: 12 MG, UNK
     Route: 041
     Dates: start: 20180319
  3. PARACETAMOL [Suspect]
     Active Substance: ACETAMINOPHEN
     Indication: PRODUCT USED FOR UNKNOWN INDICATION
     Dosage: 1 G, UNK
     Route: 048
  4. FAMCICLOVIR. [Suspect]
     Active Substance: FAMCICLOVIR
     Indication: PRODUCT USED FOR UNKNOWN INDICATION
     Dosage: 250 MG, UNK
     Route: 048
  5. SULFAMETHOXAZOLE AND TRIMETHOPRIM [Suspect]
     Active Substance: SULFAMETHOXAZOLE\TRIMETHOPRIM
     Indication: PRODUCT USED FOR UNKNOWN INDICATION
     Dosage: 2880 MILLIGRAM, WEEKLY (960 MG, THREE TIMES A WEEK)
     Route: 065
  6. CHLORPHENAMINE HYDROCHLORIDE [Suspect]
     Active Substance: CHLORPHENIRAMINE HYDROCHLORIDE
     Indication: PRODUCT USED FOR UNKNOWN INDICATION
     Dosage: 10 MILLIGRAM, UNK
     Route: 042
  7. LEMTRADA [Suspect]
     Active Substance: ALEMTUZUMAB
     Dosage: UNK, DOSAGE 1
     Route: 041
  8. LEMTRADA [Suspect]
     Active Substance: ALEMTUZUMAB
     Dosage: UNK
     Route: 041
  9. IBUPROFEN. [Suspect]
     Active Substance: IBUPROFEN
     Indication: PRODUCT USED FOR UNKNOWN INDICATION
     Dosage: 400 MILLIGRAMS, UNK
     Route: 048
  10. LANSOPRAZOLE. [Suspect]
     Active Substance: LANSOPRAZOLE
     Indication: PRODUCT USED FOR UNKNOWN INDICATION
     Dosage: 15 MG, UNK
     Route: 048

REACTIONS (4)
  - Incorrect drug administration rate [Unknown]
  - Rash [Recovered/Resolved]
  - Rash generalised [Not Recovered/Not Resolved]
  - Incorrect product administration duration [Unknown]

NARRATIVE: CASE EVENT DATE: 20180320
